FAERS Safety Report 8576141 (Version 2)
Quarter: 2013Q4

REPORT INFORMATION
  Report Type: Report from Study
  Country: JP (occurrence: JP)
  Receive Date: 20120523
  Receipt Date: 20131112
  Transmission Date: 20140711
  Serious: Yes (Death, Life-Threatening, Hospitalization)
  Sender: FDA-Public Use
  Company Number: JP-ACTELION-A-CH2012-65843

PATIENT
  Age: 38 Year
  Sex: Female
  Weight: 68 kg

DRUGS (6)
  1. TRACLEER [Suspect]
     Indication: PULMONARY ARTERIAL HYPERTENSION
     Dosage: 125 MG, BID
     Route: 048
     Dates: start: 20081119, end: 20100701
  2. TRACLEER [Suspect]
     Dosage: 62.5 MG, BID
     Route: 048
     Dates: start: 20081105, end: 20081118
  3. SILDENAFIL CITRATE [Concomitant]
     Dosage: 30 MG, UNK
  4. SILDENAFIL CITRATE [Concomitant]
     Dosage: 60 MG, UNK
  5. FUROSEMIDE [Concomitant]
  6. SPIRONOLACTONE [Concomitant]

REACTIONS (28)
  - Pulmonary arterial hypertension [Fatal]
  - Condition aggravated [Fatal]
  - Cardio-respiratory arrest [Fatal]
  - Resuscitation [Fatal]
  - Decreased appetite [Fatal]
  - Metabolic acidosis [Fatal]
  - Hypophagia [Fatal]
  - Right ventricular failure [Fatal]
  - Oedema [Fatal]
  - Jugular vein distension [Fatal]
  - Generalised oedema [Fatal]
  - Pleural effusion [Fatal]
  - Hepatic failure [Not Recovered/Not Resolved]
  - Jaundice [Not Recovered/Not Resolved]
  - Ascites [Not Recovered/Not Resolved]
  - Bilirubin conjugated increased [Not Recovered/Not Resolved]
  - Blood bilirubin increased [Not Recovered/Not Resolved]
  - Protein total decreased [Not Recovered/Not Resolved]
  - Bacteraemia [Not Recovered/Not Resolved]
  - Device related infection [Not Recovered/Not Resolved]
  - Renal failure acute [Not Recovered/Not Resolved]
  - Dehydration [Not Recovered/Not Resolved]
  - Transfusion [Not Recovered/Not Resolved]
  - Anuria [Not Recovered/Not Resolved]
  - Blood pressure decreased [Not Recovered/Not Resolved]
  - Hepatorenal syndrome [Not Recovered/Not Resolved]
  - Haemodialysis [Not Recovered/Not Resolved]
  - Atrial fibrillation [Not Recovered/Not Resolved]
